FAERS Safety Report 21011765 (Version 1)
Quarter: 2022Q2

REPORT INFORMATION
  Report Type: Report from Study
  Country: US (occurrence: US)
  Receive Date: 20220627
  Receipt Date: 20220627
  Transmission Date: 20220721
  Serious: Yes (Other)
  Sender: FDA-Public Use
  Company Number: US-HORIZON THERAPEUTICS-HZN-2022-003535

PATIENT

DRUGS (3)
  1. KRYSTEXXA [Suspect]
     Active Substance: PEGLOTICASE
     Indication: Gout
     Dosage: FIRST INFUSION
     Route: 042
     Dates: start: 20220413
  2. KRYSTEXXA [Suspect]
     Active Substance: PEGLOTICASE
     Dosage: SECOND INFUSION
     Route: 042
     Dates: start: 20220427
  3. KRYSTEXXA [Suspect]
     Active Substance: PEGLOTICASE
     Dosage: THIRD INFUSION
     Route: 042
     Dates: start: 20220511

REACTIONS (6)
  - Loss of consciousness [Recovered/Resolved]
  - Rash [Recovered/Resolved]
  - Flushing [Not Recovered/Not Resolved]
  - Erythema [Recovered/Resolved]
  - Chest discomfort [Recovered/Resolved]
  - Gout [Recovered/Resolved]

NARRATIVE: CASE EVENT DATE: 20220101
